FAERS Safety Report 8919862 (Version 1)
Quarter: 2012Q4

REPORT INFORMATION
  Report Type: 
  Country: US (occurrence: US)
  Receive Date: 20121121
  Receipt Date: 20121121
  Transmission Date: 20130627
  Serious: Yes (Other)
  Sender: FDA-Public Use
  Company Number: US-PFIZER INC-2012290740

PATIENT
  Sex: Female

DRUGS (1)
  1. PRISTIQ [Suspect]
     Dosage: UNK

REACTIONS (6)
  - Impaired work ability [Unknown]
  - Malaise [Unknown]
  - Anxiety [Unknown]
  - Dyspnoea [Unknown]
  - Heart rate increased [Unknown]
  - Neck pain [Unknown]
